FAERS Safety Report 14419973 (Version 1)
Quarter: 2018Q1

REPORT INFORMATION
  Report Type: Spontaneous
  Country: FR (occurrence: FR)
  Receive Date: 20180122
  Receipt Date: 20180122
  Transmission Date: 20180509
  Serious: Yes (Hospitalization)
  Sender: FDA-Public Use
  Company Number: FR-MYLANLABS-2018M1004236

PATIENT
  Age: 84 Year
  Sex: Male
  Weight: 79 kg

DRUGS (17)
  1. DEXAMETHASONE. [Suspect]
     Active Substance: DEXAMETHASONE
     Indication: PLASMA CELL MYELOMA
     Dosage: 20 MG, QW
     Route: 041
     Dates: start: 20160212
  2. MOVICOL [Concomitant]
     Active Substance: POLYETHYLENE GLYCOL 3350\POTASSIUM CHLORIDE\SODIUM BICARBONATE\SODIUM CHLORIDE
     Indication: CONSTIPATION
     Dosage: 3 DF, QD
     Route: 048
     Dates: start: 20160218
  3. ZELITREX [Concomitant]
     Active Substance: VALACYCLOVIR HYDROCHLORIDE
     Indication: ANTIVIRAL TREATMENT
     Dosage: 1000 MG, QD
     Route: 048
     Dates: start: 20160212
  4. ACUPAN [Concomitant]
     Active Substance: NEFOPAM HYDROCHLORIDE
     Indication: PAIN
     Dosage: 80 MG, QD
     Route: 048
     Dates: start: 20160204
  5. ZOMETA [Concomitant]
     Active Substance: ZOLEDRONIC ACID
     Indication: HYPERCALCAEMIA
     Dosage: 4 MG, MONTHLY
     Route: 041
     Dates: start: 20160408
  6. IMOVANE [Concomitant]
     Active Substance: ZOPICLONE
     Indication: SEDATIVE THERAPY
     Dosage: 7.5 MG, QD
     Route: 048
     Dates: start: 20160318
  7. DIFFU K [Concomitant]
     Active Substance: POTASSIUM CHLORIDE
     Indication: HYPOKALAEMIA
     Dosage: 3600 MG, QD
     Route: 048
     Dates: start: 20160220
  8. ORACILLINE [Concomitant]
     Active Substance: PENICILLIN V
     Indication: ARTHRALGIA
     Dosage: 2000000 IU, QD
     Route: 048
     Dates: start: 20160212
  9. BROMAZEPAM [Concomitant]
     Active Substance: BROMAZEPAM
     Indication: PROPHYLAXIS
     Dosage: 1.5 MG, QD
     Route: 048
     Dates: start: 20160204
  10. KARDEGIC [Concomitant]
     Active Substance: ASPIRIN DL-LYSINE
     Indication: THROMBOSIS PROPHYLAXIS
     Dosage: 75 MG, QD
     Route: 048
     Dates: start: 20160827
  11. DARATUMUMAB [Concomitant]
     Active Substance: DARATUMUMAB
     Indication: PLASMA CELL MYELOMA
     Dosage: 1248 MG, MONTHLY
     Route: 041
     Dates: start: 20160212
  12. INEXIUM                            /01479302/ [Concomitant]
     Active Substance: ESOMEPRAZOLE MAGNESIUM
     Indication: GASTROOESOPHAGEAL REFLUX DISEASE
     Dosage: 20 MG, QD
     Route: 048
     Dates: start: 20160520
  13. BACTRIM [Concomitant]
     Active Substance: SULFAMETHOXAZOLE\TRIMETHOPRIM
     Indication: PSEUDOMONAS INFECTION
  14. REVLIMID [Suspect]
     Active Substance: LENALIDOMIDE
     Indication: PLASMA CELL MYELOMA
     Dosage: 25 MILLIGRAM
     Route: 048
     Dates: start: 20160212
  15. XANAX [Concomitant]
     Active Substance: ALPRAZOLAM
     Indication: ANXIETY
     Dosage: 0.08 MG, QD
     Route: 048
     Dates: start: 20160204
  16. BACTRIM [Concomitant]
     Active Substance: SULFAMETHOXAZOLE\TRIMETHOPRIM
     Indication: PROSTATITIS
     Dosage: 3 DF, QW
     Route: 048
     Dates: start: 20160212
  17. LEDERFOLINE [Concomitant]
     Active Substance: LEUCOVORIN CALCIUM
     Indication: HAEMATOTOXICITY
     Dosage: 75 MG, QW
     Route: 048
     Dates: start: 20160212

REACTIONS (1)
  - Ischaemic stroke [Not Recovered/Not Resolved]

NARRATIVE: CASE EVENT DATE: 20171218
